FAERS Safety Report 21932902 (Version 3)
Quarter: 2023Q2

REPORT INFORMATION
  Report Type: Spontaneous
  Country: CA (occurrence: CA)
  Receive Date: 20230131
  Receipt Date: 20230426
  Transmission Date: 20230721
  Serious: Yes (Hospitalization, Other)
  Sender: FDA-Public Use
  Company Number: CA-ALLERGAN-2302665US

PATIENT
  Sex: Male

DRUGS (25)
  1. ASENAPINE MALEATE [Suspect]
     Active Substance: ASENAPINE MALEATE
     Indication: Depression
     Dosage: 5 MG, QD
  2. ASENAPINE MALEATE [Suspect]
     Active Substance: ASENAPINE MALEATE
     Indication: Product used for unknown indication
     Dosage: 2 DF, QD (5 MILLIGRAM, 2 EVERY 1 DAYS)
  3. ASENAPINE MALEATE [Suspect]
     Active Substance: ASENAPINE MALEATE
     Dosage: 5 MG, QD
  4. ARIPIPRAZOLE [Suspect]
     Active Substance: ARIPIPRAZOLE
     Indication: Product used for unknown indication
     Dosage: UNK
  5. ARIPIPRAZOLE [Suspect]
     Active Substance: ARIPIPRAZOLE
     Indication: Depression
  6. BENZTROPINE [Suspect]
     Active Substance: BENZTROPINE
     Indication: Extrapyramidal disorder
     Dosage: 2 MG, QD
     Route: 048
  7. BENZTROPINE [Suspect]
     Active Substance: BENZTROPINE
     Indication: Product used for unknown indication
     Dosage: 2 MG, QD
  8. DIVALPROEX SODIUM [Suspect]
     Active Substance: DIVALPROEX SODIUM
     Indication: Product used for unknown indication
     Dosage: 500 MG, QD
     Route: 048
  9. DIVALPROEX SODIUM [Suspect]
     Active Substance: DIVALPROEX SODIUM
     Dosage: 1000 MG, QD
     Route: 048
  10. GABAPENTIN [Suspect]
     Active Substance: GABAPENTIN
     Indication: Product used for unknown indication
     Dosage: 600 MG, Q8HR
     Route: 048
  11. PAROXETINE HYDROCHLORIDE [Suspect]
     Active Substance: PAROXETINE HYDROCHLORIDE
     Indication: Product used for unknown indication
     Dosage: 10 MG, QD
     Route: 048
  12. PAROXETINE HYDROCHLORIDE [Suspect]
     Active Substance: PAROXETINE HYDROCHLORIDE
     Indication: Depression
     Dosage: 20 MG, QD
     Route: 048
  13. PAROXETINE HYDROCHLORIDE [Suspect]
     Active Substance: PAROXETINE HYDROCHLORIDE
     Dosage: 10 MG, QD
  14. PAROXETINE HYDROCHLORIDE [Suspect]
     Active Substance: PAROXETINE HYDROCHLORIDE
     Dosage: UNK
  15. PAROXETINE HYDROCHLORIDE [Suspect]
     Active Substance: PAROXETINE HYDROCHLORIDE
     Dosage: 20 MG, QD
  16. RISPERIDONE [Suspect]
     Active Substance: RISPERIDONE
     Indication: Product used for unknown indication
     Dosage: UNK
  17. RISPERIDONE [Suspect]
     Active Substance: RISPERIDONE
     Indication: Depression
     Dosage: 0.25 MG, QD
     Route: 048
  18. BISOPROLOL [Concomitant]
     Active Substance: BISOPROLOL
  19. DDAVP [Concomitant]
     Active Substance: DESMOPRESSIN ACETATE
  20. MEDROXYPROGESTERONE ACETATE [Concomitant]
     Active Substance: MEDROXYPROGESTERONE ACETATE
  21. QUINAPRIL [Concomitant]
     Active Substance: QUINAPRIL
  22. ROSUVASTATIN [Concomitant]
     Active Substance: ROSUVASTATIN
  23. BENZTROPINE [Concomitant]
     Active Substance: BENZTROPINE
     Dosage: 2 MG, QD
     Route: 048
  24. DIVALPROEX SODIUM [Concomitant]
     Active Substance: DIVALPROEX SODIUM
  25. GABAPENTIN [Concomitant]
     Active Substance: GABAPENTIN

REACTIONS (21)
  - Cogwheel rigidity [Unknown]
  - Head titubation [Unknown]
  - Sedation complication [Unknown]
  - Serotonin syndrome [Unknown]
  - Toxicity to various agents [Unknown]
  - Aphasia [Unknown]
  - Ataxia [Unknown]
  - Blood pressure increased [Unknown]
  - Clonus [Unknown]
  - Confusional state [Unknown]
  - Disorientation [Unknown]
  - Gait disturbance [Unknown]
  - Intention tremor [Unknown]
  - Mental status changes [Unknown]
  - Nystagmus [Unknown]
  - Resting tremor [Unknown]
  - Extrapyramidal disorder [Unknown]
  - Muscle rigidity [Unknown]
  - Hallucination, visual [Unknown]
  - Dry mouth [Unknown]
  - Delirium [Unknown]
